FAERS Safety Report 10534361 (Version 1)
Quarter: 2014Q4

REPORT INFORMATION
  Report Type: Spontaneous
  Country: US (occurrence: US)
  Receive Date: 20141022
  Receipt Date: 20141022
  Transmission Date: 20150529
  Serious: No
  Sender: FDA-Public Use
  Company Number: US-BAUSCH-SYM-2013-11010

PATIENT
  Age: 55 Year
  Sex: Female

DRUGS (1)
  1. WELLBUTRIN XL [Suspect]
     Active Substance: BUPROPION HYDROCHLORIDE
     Indication: DEPRESSION
     Dosage: 3 TABLETS IN THE A.M.
     Route: 048

REACTIONS (2)
  - Incorrect dosage administered [Recovered/Resolved]
  - Drug ineffective [Not Recovered/Not Resolved]
